FAERS Safety Report 4601345-2 (Version None)
Quarter: 2005Q1

REPORT INFORMATION
  Report Type: 
  Country: None (occurrence: None)
  Receive Date: 20050204
  Receipt Date: 20040618
  Transmission Date: 20050727
  Serious: Yes (Other)
  Sender: FDA-Public Use
  Company Number: 800034

PATIENT
  Age: 54 Year
  Sex: Male
  Weight: 113.3993 kg

DRUGS (12)
  1. DIANEAL [Suspect]
     Indication: PERITONEAL DIALYSIS
     Dosage: 2.5 L; QD; INTRAPERITONEAL
     Route: 033
     Dates: start: 20031202
  2. FERMININ [Concomitant]
  3. ZOCOR [Concomitant]
  4. PLAVIX [Concomitant]
  5. PREVACID [Concomitant]
  6. TOPROL-XL [Concomitant]
  7. ZETIA [Concomitant]
  8. TRICOR [Concomitant]
  9. ADVANTIA [Concomitant]
  10. INSULIN [Concomitant]
  11. ALLOPURINOL [Concomitant]
  12. PHOSLOW [Concomitant]

REACTIONS (2)
  - ABDOMINAL PAIN [None]
  - PERITONITIS [None]
